FAERS Safety Report 6541760-3 (Version None)
Quarter: 2010Q1

REPORT INFORMATION
  Report Type: 
  Country: None (occurrence: None)
  Receive Date: 20100119
  Receipt Date: 20100112
  Transmission Date: 20100710
  Serious: Yes (Hospitalization)
  Sender: FDA-Public Use
  Company Number: US-ASTRAZENECA-2010SE01512

PATIENT
  Age: 86 Year
  Sex: Female

DRUGS (12)
  1. SEROQUEL [Suspect]
     Indication: DEPRESSION
     Route: 048
     Dates: start: 20090501
  2. CRESTOR [Suspect]
     Indication: BLOOD CHOLESTEROL INCREASED
     Route: 048
     Dates: start: 20070101
  3. TRIPTANOL [Concomitant]
     Indication: SLEEP DISORDER
     Dosage: OD
  4. ANCORON [Concomitant]
     Indication: CARDIAC DISORDER
     Dosage: BID
  5. CARVEDILOL [Concomitant]
     Indication: CARDIAC DISORDER
     Dosage: BID
  6. ASPIRIN [Concomitant]
     Indication: CARDIAC DISORDER
     Dosage: OD
  7. FUROSEMIDE [Concomitant]
     Indication: CARDIAC DISORDER
     Dosage: BID
  8. PANTOPRAZOLE [Concomitant]
     Indication: CARDIAC DISORDER
     Dosage: BID
  9. PURAN T4 [Concomitant]
     Indication: HYPOTHYROIDISM
     Dosage: OD
  10. DIMETICONE [Concomitant]
     Indication: FLATULENCE
     Dosage: OD
  11. TAMARINE [Concomitant]
     Indication: CONSTIPATION
     Dosage: OD
  12. DRAMIN B6 [Concomitant]
     Indication: VOMITING
     Dosage: TID/PRN

REACTIONS (2)
  - URINARY TRACT INFECTION [None]
  - VOMITING [None]
